FAERS Safety Report 22386437 (Version 2)
Quarter: 2023Q2

REPORT INFORMATION
  Report Type: Spontaneous
  Country: CN (occurrence: CN)
  Receive Date: 20230531
  Receipt Date: 20230602
  Transmission Date: 20230722
  Serious: Yes (Hospitalization, Other)
  Sender: FDA-Public Use
  Company Number: None

PATIENT
  Age: 51 Year
  Sex: Male

DRUGS (11)
  1. VANCOMYCIN [Suspect]
     Active Substance: VANCOMYCIN
     Indication: Anti-infective therapy
     Dosage: 0.5 GRAM, EVERY 12 HRS
     Route: 065
     Dates: start: 2020
  2. VANCOMYCIN [Suspect]
     Active Substance: VANCOMYCIN
     Indication: Evidence based treatment
  3. MEROPENEM [Suspect]
     Active Substance: MEROPENEM
     Indication: Anti-infective therapy
     Dosage: 1 GRAM, EVERY 6 HRS
     Route: 065
     Dates: start: 2020
  4. MEROPENEM [Suspect]
     Active Substance: MEROPENEM
     Indication: Evidence based treatment
  5. SULFAMETHAZINE [Suspect]
     Active Substance: SULFAMETHAZINE
     Indication: Immunosuppressant drug therapy
     Dosage: UNK
     Route: 065
  6. SULFAMETHAZINE [Suspect]
     Active Substance: SULFAMETHAZINE
     Indication: Ankylosing spondylitis
  7. SULFAMETHAZINE [Suspect]
     Active Substance: SULFAMETHAZINE
     Indication: Antibiotic therapy
  8. METHYLPREDNISOLONE [Suspect]
     Active Substance: METHYLPREDNISOLONE
     Indication: Pneumonitis
     Dosage: 500 MILLIGRAM, MEGA DOSE
     Route: 065
     Dates: start: 2020
  9. METHYLPREDNISOLONE [Suspect]
     Active Substance: METHYLPREDNISOLONE
     Indication: Immunosuppressant drug therapy
  10. CORTICOTROPIN [Suspect]
     Active Substance: CORTICOTROPIN
     Indication: Hormone therapy
     Dosage: UNK
     Route: 065
  11. OXYGEN [Concomitant]
     Active Substance: OXYGEN
     Indication: Product used for unknown indication
     Dosage: UNK
     Route: 065

REACTIONS (1)
  - Myelosuppression [Recovered/Resolved]

NARRATIVE: CASE EVENT DATE: 20200101
